FAERS Safety Report 7533038-6 (Version None)
Quarter: 2011Q2

REPORT INFORMATION
  Report Type: 
  Country: None (occurrence: None)
  Receive Date: 20110608
  Receipt Date: 20110526
  Transmission Date: 20111010
  Serious: Yes (Other)
  Sender: FDA-Public Use
  Company Number: FR-UCBSA-033953

PATIENT
  Age: 75 Year
  Sex: Female

DRUGS (3)
  1. METHOTREXATE SODIUM [Concomitant]
     Route: 058
  2. CIMZIA [Suspect]
     Route: 058
     Dates: start: 20110201, end: 20110101
  3. CIMZIA [Suspect]
     Route: 058
     Dates: start: 20110101, end: 20110331

REACTIONS (4)
  - ARTHRALGIA [None]
  - PARAESTHESIA [None]
  - ASTHENIA [None]
  - NEUROPATHY PERIPHERAL [None]
